FAERS Safety Report 4987129-4 (Version None)
Quarter: 2006Q2

REPORT INFORMATION
  Report Type: 
  Country: None (occurrence: None)
  Receive Date: 20060427
  Receipt Date: 20060111
  Transmission Date: 20061013
  Serious: No
  Sender: FDA-Public Use
  Company Number: DL2006051

PATIENT
  Age: 33 Year
  Sex: Female

DRUGS (2)
  1. MIFEPRISTONE [Suspect]
     Indication: ABORTION INDUCED
     Dosage: 600 MG, ORAL
     Route: 048
     Dates: start: 20050617
  2. MISOPROSTOL [Suspect]
     Dosage: 400 MCG, VAGINAL
     Route: 067
     Dates: start: 20050619

REACTIONS (1)
  - ABORTION INCOMPLETE [None]
